FAERS Safety Report 6223180 (Version 1)
Quarter: 2020Q3

REPORT INFORMATION
  Report Type: Spontaneous
  Country: DE (occurrence: DE)
  Receive Date: 20070125
  Receipt Date: 20070125
  Transmission Date: 20201104
  Serious: Yes (Other)
  Sender: FDA-Public Use
  Company Number: DE-ROCHE-472195

PATIENT
  Age: 84 Year
  Sex: Male

DRUGS (6)
  1. GLYBURIDE. [Concomitant]
     Active Substance: GLYBURIDE
     Dosage: DOSAGE REGIMEN REPORTED AS 1,75?0?0?0.
  2. TRENANTONE [Concomitant]
     Active Substance: LEUPROLIDE ACETATE
     Dates: start: 20030615
  3. ASPIRIN. [Concomitant]
     Active Substance: ASPIRIN
     Dosage: DOSAGE REGIMEN REPORTED AS 1/2?0?0?0.
  4. ZOMETA [Suspect]
     Active Substance: ZOLEDRONIC ACID
     Route: 065
     Dates: start: 20030615, end: 20060915
  5. IBANDRONIC ACID. [Suspect]
     Active Substance: IBANDRONIC ACID
     Route: 042
     Dates: start: 20060915
  6. OMEPRAZOLE. [Concomitant]
     Active Substance: OMEPRAZOLE
     Dosage: DOSAGE REGIMEN REPORTED AS 1?0?0?1.

REACTIONS (2)
  - Metabolic acidosis [Not Recovered/Not Resolved]
  - Nephropathy toxic [Not Recovered/Not Resolved]

NARRATIVE: CASE EVENT DATE: 20060701
